FAERS Safety Report 18335141 (Version 3)
Quarter: 2020Q4

REPORT INFORMATION
  Report Type: Spontaneous
  Country: CL (occurrence: CL)
  Receive Date: 20201001
  Receipt Date: 20201106
  Transmission Date: 20210113
  Serious: No
  Sender: FDA-Public Use
  Company Number: CL-PFIZER INC-2020372864

PATIENT
  Sex: Female

DRUGS (1)
  1. SAYANA PRESS [Suspect]
     Active Substance: MEDROXYPROGESTERONE\MEDROXYPROGESTERONE ACETATE
     Dosage: UNKNOWN

REACTIONS (5)
  - Wrong technique in device usage process [Unknown]
  - Injection site mass [Unknown]
  - Device issue [Unknown]
  - Drug dose omission by device [Unknown]
  - Injection site pain [Unknown]
